FAERS Safety Report 11584782 (Version 2)
Quarter: 2015Q4

REPORT INFORMATION
  Report Type: Spontaneous
  Country: US (occurrence: US)
  Receive Date: 20151001
  Receipt Date: 20151019
  Transmission Date: 20160304
  Serious: Yes (Other)
  Sender: FDA-Public Use
  Company Number: US-JNJFOC-20150904207

PATIENT
  Age: 27 Year
  Sex: Female

DRUGS (4)
  1. COGENTIN [Concomitant]
     Active Substance: BENZTROPINE MESYLATE
     Indication: EXTRAPYRAMIDAL DISORDER
     Route: 048
     Dates: start: 20150821, end: 20150824
  2. HALDOL [Suspect]
     Active Substance: HALOPERIDOL
     Indication: PSYCHOTIC DISORDER
     Route: 048
     Dates: start: 20150814, end: 20150901
  3. INVEGA SUSTENNA [Suspect]
     Active Substance: PALIPERIDONE PALMITATE
     Indication: PSYCHOTIC DISORDER
     Route: 030
     Dates: start: 20150817
  4. INVEGA SUSTENNA [Suspect]
     Active Substance: PALIPERIDONE PALMITATE
     Indication: PSYCHOTIC DISORDER
     Route: 030
     Dates: start: 20150824

REACTIONS (3)
  - Galactorrhoea [Not Recovered/Not Resolved]
  - Amenorrhoea [Not Recovered/Not Resolved]
  - Blood prolactin increased [Not Recovered/Not Resolved]

NARRATIVE: CASE EVENT DATE: 20150826
